FAERS Safety Report 5145050-5 (Version None)
Quarter: 2006Q4

REPORT INFORMATION
  Report Type: 
  Country: None (occurrence: None)
  Receive Date: 20061107
  Receipt Date: 20061030
  Transmission Date: 20070319
  Serious: Yes (Death)
  Sender: FDA-Public Use
  Company Number: GB-GLAXOSMITHKLINE-B0445500A

PATIENT
  Age: 74 Year
  Sex: Female

DRUGS (6)
  1. LITHIUM CARBONATE [Suspect]
     Indication: DEPRESSION
     Route: 048
     Dates: end: 20060822
  2. CHLORPROMAZINE [Concomitant]
     Indication: NAUSEA
     Route: 048
     Dates: end: 20060811
  3. DONEPEZIL HCL [Concomitant]
     Indication: DEMENTIA
     Dosage: 10MG PER DAY
     Route: 048
     Dates: end: 20060825
  4. DOXEPIN HCL [Concomitant]
     Indication: DEPRESSION
     Dosage: 50MG PER DAY
     Route: 048
     Dates: end: 20060815
  5. LANSOPRAZOLE [Concomitant]
     Indication: DYSPEPSIA
     Dosage: 30MG PER DAY
     Route: 048
     Dates: start: 20060823
  6. ORPHENADRINE CITRATE [Concomitant]
     Indication: PARKINSONISM
     Dosage: 50MG THREE TIMES PER DAY
     Route: 048
     Dates: end: 20060823

REACTIONS (3)
  - DRUG TOXICITY [None]
  - HYPERNATRAEMIA [None]
  - RENAL IMPAIRMENT [None]
